FAERS Safety Report 6993025-3 (Version None)
Quarter: 2010Q3

REPORT INFORMATION
  Report Type: 
  Country: None (occurrence: None)
  Receive Date: 20100917
  Receipt Date: 20100913
  Transmission Date: 20110219
  Serious: Yes (Hospitalization)
  Sender: FDA-Public Use
  Company Number: TR-ROXANE LABORATORIES, INC.-2010-RO-01209RO

PATIENT
  Age: 63 Year
  Sex: Female

DRUGS (7)
  1. CYCLOPHOSPHAMIDE [Suspect]
     Indication: BREAST CANCER STAGE III
     Route: 042
  2. DEXAMETHASONE [Suspect]
     Indication: PROPHYLAXIS OF NAUSEA AND VOMITING
     Route: 042
  3. DEXAMETHASONE [Suspect]
     Route: 048
  4. GRANISETRON HCL [Suspect]
     Indication: PROPHYLAXIS OF NAUSEA AND VOMITING
     Route: 042
  5. GRANISETRON HCL [Suspect]
     Route: 048
  6. 5-FLUORURACIL [Suspect]
     Indication: BREAST CANCER STAGE III
     Route: 042
  7. EPIRUBICIN [Suspect]
     Indication: BREAST CANCER STAGE III
     Route: 042

REACTIONS (1)
  - PALMAR-PLANTAR ERYTHRODYSAESTHESIA SYNDROME [None]
